FAERS Safety Report 4563279-1 (Version None)
Quarter: 2005Q1

REPORT INFORMATION
  Report Type: 
  Country: None (occurrence: None)
  Receive Date: 20050121
  Receipt Date: 20050107
  Transmission Date: 20050727
  Serious: Yes (Hospitalization, Other)
  Sender: FDA-Public Use
  Company Number: HQWYE432507JAN05

PATIENT
  Age: 83 Year
  Sex: Female

DRUGS (10)
  1. CORDARONE [Suspect]
     Indication: ATRIAL FIBRILLATION
     Dosage: 200 MG 1X PER 1 DAY ORAL
     Route: 048
     Dates: start: 20041109, end: 20041117
  2. ASPEGIC 1000 [Concomitant]
  3. PREDNISONE TAB [Concomitant]
  4. CITALOPRAM HYDROBROMIDE [Concomitant]
  5. LASILIX (FUROSEMIDE) [Concomitant]
  6. POTASSIUM CHLORIDE [Concomitant]
  7. DUPHALAC [Concomitant]
  8. DIGOXIN [Concomitant]
  9. OFLOXACIN [Concomitant]
  10. HEPTAMINOL HYDROCHLORIDE (HEPTAMINOL HYDROCHLORIDE) [Concomitant]

REACTIONS (7)
  - ALANINE AMINOTRANSFERASE INCREASED [None]
  - ASPARTATE AMINOTRANSFERASE INCREASED [None]
  - BLOOD ALKALINE PHOSPHATASE INCREASED [None]
  - GAMMA-GLUTAMYLTRANSFERASE INCREASED [None]
  - LIVER FUNCTION TEST ABNORMAL [None]
  - MALAISE [None]
  - NERVOUS SYSTEM DISORDER [None]
